FAERS Safety Report 4278851-6 (Version None)
Quarter: 2004Q1

REPORT INFORMATION
  Report Type: 
  Country: None (occurrence: None)
  Receive Date: 20040122
  Receipt Date: 20040116
  Transmission Date: 20041129
  Serious: Yes (Other)
  Sender: FDA-Public Use
  Company Number: 430002K04USA

PATIENT
  Age: 46 Year
  Sex: Female

DRUGS (3)
  1. NOVANTRONE [Suspect]
     Indication: MULTIPLE SCLEROSIS
  2. REBIF [Suspect]
     Indication: MULTIPLE SCLEROSIS
     Dosage: 44 MCG
     Dates: start: 20031213
  3. ANTIHYPERTENSIVES [Concomitant]

REACTIONS (5)
  - ANXIETY [None]
  - EJECTION FRACTION DECREASED [None]
  - HEADACHE [None]
  - INJECTION SITE DISCOMFORT [None]
  - PALPITATIONS [None]
